FAERS Safety Report 8019863-6 (Version None)
Quarter: 2012Q1

REPORT INFORMATION
  Report Type: 
  Country: None (occurrence: None)
  Receive Date: 20120103
  Receipt Date: 20111230
  Transmission Date: 20120608
  Serious: Yes (Other)
  Sender: FDA-Public Use
  Company Number: PT-BAYER-2011-124581

PATIENT
  Age: 70 Year
  Sex: Male

DRUGS (14)
  1. METFORMIN HCL [Concomitant]
  2. ALPRAZOLAM [Concomitant]
  3. IDEBENONE [Concomitant]
  4. ULTRAVIST 150 [Suspect]
     Dates: start: 20090603, end: 20090603
  5. LORENIN [Concomitant]
  6. TECNOSAL [Concomitant]
  7. TRENTAL [Concomitant]
  8. NORVASC [Concomitant]
  9. DIOVAN HCT [Concomitant]
  10. TIMOPTOL [Concomitant]
  11. XALATAN [Concomitant]
  12. NAPROSYN [Concomitant]
  13. ATORVASTATIN CALCIUM [Concomitant]
  14. OMEPRAZOLE [Concomitant]

REACTIONS (2)
  - DERMATITIS BULLOUS [None]
  - RASH [None]
